FAERS Safety Report 6350960-7 (Version None)
Quarter: 2009Q3

REPORT INFORMATION
  Report Type: 
  Country: None (occurrence: None)
  Receive Date: 20090912
  Receipt Date: 20090622
  Transmission Date: 20100115
  Serious: No
  Sender: FDA-Public Use
  Company Number: US-ABBOTT-07P-163-0371035-00

PATIENT
  Sex: Female
  Weight: 58.566 kg

DRUGS (9)
  1. HUMIRA [Suspect]
     Indication: CROHN'S DISEASE
     Route: 058
     Dates: start: 20070602
  2. HUMIRA [Suspect]
  3. LEVOTHYROXINE SODIUM [Concomitant]
     Indication: DRUG USE FOR UNKNOWN INDICATION
  4. MESALAZINE [Concomitant]
     Indication: DRUG USE FOR UNKNOWN INDICATION
  5. FOLIC ACID [Concomitant]
     Indication: DRUG USE FOR UNKNOWN INDICATION
  6. MIACALCIUM [Concomitant]
     Indication: DRUG USE FOR UNKNOWN INDICATION
  7. M.V.I. [Concomitant]
     Indication: DRUG USE FOR UNKNOWN INDICATION
  8. CALCIUM-SANDOZ [Concomitant]
     Indication: DRUG USE FOR UNKNOWN INDICATION
  9. ERGOCALCIFEROL [Concomitant]
     Indication: DRUG USE FOR UNKNOWN INDICATION

REACTIONS (4)
  - DYSGEUSIA [None]
  - FEELING JITTERY [None]
  - HEART RATE INCREASED [None]
  - INCORRECT DOSE ADMINISTERED [None]
